FAERS Safety Report 20826979 (Version 2)
Quarter: 2022Q2

REPORT INFORMATION
  Report Type: Spontaneous
  Country: CA (occurrence: CA)
  Receive Date: 20220513
  Receipt Date: 20220614
  Transmission Date: 20220721
  Serious: Yes (Death, Other)
  Sender: FDA-Public Use
  Company Number: CA-PFIZER INC-2021892467

PATIENT
  Age: 85 Year
  Sex: Male

DRUGS (1)
  1. LORBRENA [Suspect]
     Active Substance: LORLATINIB
     Dosage: UNK
     Dates: start: 20210412

REACTIONS (11)
  - Death [Fatal]
  - Gait disturbance [Unknown]
  - Loss of personal independence in daily activities [Unknown]
  - Pain [Recovered/Resolved]
  - Discomfort [Recovered/Resolved]
  - Anxiety [Recovered/Resolved]
  - Depressed mood [Recovered/Resolved]
  - General physical health deterioration [Recovering/Resolving]
  - Peripheral swelling [Unknown]
  - Blood disorder [Unknown]
  - Back disorder [Unknown]

NARRATIVE: CASE EVENT DATE: 20210101
